FAERS Safety Report 25901085 (Version 1)
Quarter: 2025Q4

REPORT INFORMATION
  Report Type: Spontaneous
  Country: US (occurrence: None)
  Receive Date: 20251008
  Receipt Date: 20251008
  Transmission Date: 20260117
  Serious: Yes (Hospitalization, Other)
  Sender: FDA-CTU
  Company Number: None

PATIENT
  Age: 40 Year
  Sex: Female
  Weight: 63.5 kg

DRUGS (1)
  1. TIRZEPATIDE [Suspect]
     Active Substance: TIRZEPATIDE
     Indication: Weight control
     Dosage: OTHER QUANTITY : SYRINGES;?FREQUENCY : WEEKLY;?

REACTIONS (19)
  - Metabolic acidosis [None]
  - Vomiting projectile [None]
  - Constipation [None]
  - Diarrhoea [None]
  - Blood glucose increased [None]
  - Norovirus infection [None]
  - Laboratory test abnormal [None]
  - Weight increased [None]
  - Illness [None]
  - Hyperglycaemia [None]
  - Muscular weakness [None]
  - Irritability [None]
  - Confusional state [None]
  - Hallucination, visual [None]
  - White blood cell count increased [None]
  - Platelet count increased [None]
  - Red blood cell count increased [None]
  - Neutrophil count increased [None]
  - Dehydration [None]

NARRATIVE: CASE EVENT DATE: 20250927
